FAERS Safety Report 26210327 (Version 1)
Quarter: 2025Q4

REPORT INFORMATION
  Report Type: Spontaneous
  Country: EU (occurrence: EU)
  Receive Date: 20251229
  Receipt Date: 20251229
  Transmission Date: 20260118
  Serious: Yes (Other)
  Sender: NOVO NORDISK
  Company Number: None

PATIENT
  Age: 59 Year
  Sex: Male

DRUGS (19)
  1. ALBUTEROL SULFATE [Concomitant]
     Active Substance: ALBUTEROL SULFATE
     Indication: Product used for unknown indication
     Dosage: 1-2 INHALATIONS WHEN NEEDED(100 MICROGRAMS/DOSE)
     Route: 055
     Dates: start: 20210610
  2. UREA [Concomitant]
     Active Substance: UREA
     Indication: Product used for unknown indication
     Dosage: 50MG/G (1 APPLICATION WHEN NEEDED)
     Route: 003
     Dates: start: 20220628
  3. ACETAMINOPHEN [Concomitant]
     Active Substance: ACETAMINOPHEN
     Indication: Product used for unknown indication
     Dosage: 1 G, PRN(1 TABLET X 3 WHEN NEEDED)
     Route: 048
     Dates: start: 20210930
  4. ATORVASTATIN [Concomitant]
     Active Substance: ATORVASTATIN
     Indication: Product used for unknown indication
     Dosage: 80 MG, QD
     Route: 048
     Dates: start: 20231005
  5. MAGNESIUM EQL PHARMA [Concomitant]
     Indication: Product used for unknown indication
     Dosage: 250 MG, QD
     Route: 048
     Dates: start: 20250623
  6. CANDESARTAN [Concomitant]
     Active Substance: CANDESARTAN
     Indication: Product used for unknown indication
     Dosage: 16 MG, QD
     Dates: start: 20250619
  7. LOPERAMID BROWN [Concomitant]
     Indication: Product used for unknown indication
     Dosage: 2 MG, PRN
     Route: 048
     Dates: start: 20240626
  8. AMITRIPTYLINE HYDROCHLORIDE [Concomitant]
     Active Substance: AMITRIPTYLINE HYDROCHLORIDE
     Indication: Product used for unknown indication
     Dosage: 1 DOSE 1 TIME DAILY FOR 1 WEEK THEN 2 DOSES 1 TIME DAILY TV
     Dates: start: 20250826, end: 20250930
  9. HYDROCHLOROTHIAZIDE [Concomitant]
     Active Substance: HYDROCHLOROTHIAZIDE
     Indication: Product used for unknown indication
     Dosage: 25 MG, QD
     Route: 048
     Dates: start: 20240726
  10. OMEPRAZOLE TEVA [OMEPRAZOLE] [Concomitant]
     Indication: Product used for unknown indication
     Dosage: 40 MG, PRN
     Route: 048
     Dates: start: 20240726
  11. NAPROXEN [Concomitant]
     Active Substance: NAPROXEN
     Indication: Product used for unknown indication
     Dosage: 500 MG, PRN
     Route: 048
     Dates: start: 20241119
  12. LAMOTRIGINE ORION [Concomitant]
     Indication: Product used for unknown indication
     Dosage: 1DOSE 1 TIME DAILY IN 1 FOR 2 WEEKS THEN 2 DOSES 1 TIME DAILY FOR 2 WEEKS
     Dates: start: 20250827, end: 20250923
  13. ASPIRIN [Concomitant]
     Active Substance: ASPIRIN
     Indication: Product used for unknown indication
     Dosage: 75 MG, QD
     Route: 048
     Dates: start: 20210614
  14. INSULIN GLARGINE [Concomitant]
     Active Substance: INSULIN GLARGINE
     Indication: Product used for unknown indication
     Dosage: 70 IU, QD
     Route: 058
     Dates: start: 20250619
  15. BUPROPION [Concomitant]
     Active Substance: BUPROPION
     Indication: Product used for unknown indication
     Dosage: 300 MG, QD
     Route: 048
     Dates: start: 20250416
  16. JARDIANCE [Concomitant]
     Active Substance: EMPAGLIFLOZIN
     Indication: Product used for unknown indication
     Dosage: 25 MG, QD
     Route: 048
     Dates: start: 20211027
  17. OZEMPIC [Suspect]
     Active Substance: SEMAGLUTIDE
     Indication: Type 2 diabetes mellitus
     Dosage: 1 MG, QW
     Dates: start: 20250618
  18. BUDESONIDE [Concomitant]
     Active Substance: BUDESONIDE
     Indication: Product used for unknown indication
     Dosage: 1 INHALATION X 2 WHEN NEEDED
     Route: 055
     Dates: start: 20221215
  19. DESLORATADIN STADA [Concomitant]
     Indication: Product used for unknown indication
     Dosage: 5 MG, PRN
     Route: 048
     Dates: start: 20210726

REACTIONS (2)
  - Gastrointestinal haemorrhage [Recovered/Resolved]
  - Diarrhoea [Recovered/Resolved]

NARRATIVE: CASE EVENT DATE: 20250101
